FAERS Safety Report 24131847 (Version 1)
Quarter: 2024Q3

REPORT INFORMATION
  Report Type: Spontaneous
  Country: CA (occurrence: CA)
  Receive Date: 20240724
  Receipt Date: 20240724
  Transmission Date: 20241017
  Serious: Yes (Death, Hospitalization)
  Sender: HLS THERAPEUTICS
  Company Number: CA-HLS-202401821

PATIENT
  Sex: Male

DRUGS (3)
  1. CLOZAPINE [Suspect]
     Active Substance: CLOZAPINE
     Indication: Schizophrenia
     Dosage: 1 EVERY 1 DAYS?AMOUNT: 300 MILLIGRAM?TABLETS DOSAGE FORM
     Route: 065
  2. HALOPERIDOL [Concomitant]
     Active Substance: HALOPERIDOL
     Route: 065
  3. OLANZAPINE [Concomitant]
     Active Substance: OLANZAPINE
     Dosage: NOT SPECIFIED DOSAGE FORM
     Route: 065

REACTIONS (3)
  - Cardiac failure congestive [Fatal]
  - Pneumonia [Fatal]
  - Respiratory failure [Fatal]
